FAERS Safety Report 7431136-9 (Version None)
Quarter: 2011Q2

REPORT INFORMATION
  Report Type: 
  Country: None (occurrence: None)
  Receive Date: 20110421
  Receipt Date: 20110406
  Transmission Date: 20111010
  Serious: Yes (Hospitalization, Other)
  Sender: FDA-Public Use
  Company Number: US-BAYER-2011-029431

PATIENT
  Age: 90 Year
  Sex: Male

DRUGS (8)
  1. CYCLOPHOSPHAMIDE [Suspect]
     Indication: LYMPHOMA
     Dosage: ACOPP CHEMOTHERAPY, 4 CYCLES
     Route: 065
  2. ADRIAMYCIN PFS [Suspect]
     Indication: LYMPHOMA
     Dosage: ACOPP CHEMOTHERAPY, 4 CYCLES
     Route: 065
  3. PROCARBAZINE [Suspect]
     Indication: LYMPHOMA
     Dosage: ACOPP CHEMOTHERAPY, 4 CYCLES
     Route: 065
  4. VINBLASTINE [Suspect]
     Indication: LYMPHOMA
     Dosage: ACOPP CHEMOTHERAPY, 4 CYCLES
     Route: 065
  5. DACARBAZINE [Suspect]
     Indication: HODGKIN'S DISEASE
     Dosage: AVD CHEMOTHERAPY, 3 CYCLES
     Route: 065
  6. PREDNISONE [Suspect]
     Indication: LYMPHOMA
     Dosage: ACOPP CHEMOTHERAPY, 4 CYCLES
     Route: 065
  7. ADRIAMYCIN PFS [Suspect]
     Indication: HODGKIN'S DISEASE
     Dosage: AVD CHEMOTHERAPY, 3 CYCLES
     Route: 065
  8. VINBLASTINE [Suspect]
     Indication: HODGKIN'S DISEASE
     Dosage: AVD CHEMOTHERAPY, 3 CYCLES
     Route: 065

REACTIONS (1)
  - HYPOCALCAEMIA [None]
